FAERS Safety Report 4644303-4 (Version None)
Quarter: 2005Q2

REPORT INFORMATION
  Report Type: 
  Country: None (occurrence: None)
  Receive Date: 20050331
  Receipt Date: 20050103
  Transmission Date: 20051028
  Serious: No
  Sender: FDA-Public Use
  Company Number: 05P-163-0285233-00

PATIENT
  Age: 67 Year
  Sex: Female
  Weight: 57.1532 kg

DRUGS (4)
  1. HUMIRA [Suspect]
     Indication: RHEUMATOID ARTHRITIS
     Dosage: 40 MG, 1 IN 2 WK, SUBCUTANEOUS
     Route: 058
     Dates: start: 20040716
  2. ALPRAZOLAM [Concomitant]
  3. VICODIN [Concomitant]
  4. LISINOPRIL [Concomitant]

REACTIONS (3)
  - AGEUSIA [None]
  - DIARRHOEA [None]
  - NASOPHARYNGITIS [None]
